FAERS Safety Report 16631413 (Version 19)
Quarter: 2022Q4

REPORT INFORMATION
  Report Type: Report from Study
  Country: GB (occurrence: GB)
  Receive Date: 20190725
  Receipt Date: 20221010
  Transmission Date: 20230113
  Serious: Yes (Death, Hospitalization, Congenital Anomaly, Other)
  Sender: FDA-Public Use
  Company Number: GB-ROCHE-1760118

PATIENT
  Age: 78 Year
  Sex: Female

DRUGS (113)
  1. TRASTUZUMAB [Suspect]
     Active Substance: TRASTUZUMAB
     Indication: Breast cancer metastatic
     Dosage: 525 MILLIGRAM, Q3W (LOADING DOSE), 25-FEB-2016
     Route: 042
  2. TRASTUZUMAB [Suspect]
     Active Substance: TRASTUZUMAB
     Indication: HER2 positive breast cancer
     Dosage: 400 MILLIGRAM, Q3W (MAINTAINENCE DOSE.)25-FEB-2016
     Route: 042
  3. TRASTUZUMAB [Suspect]
     Active Substance: TRASTUZUMAB
     Dosage: 350 MILLIGRAM, Q3W, DISCONTINUED DUE TO DISEASE PROGRESSION/ANTICANCER TREATMENT, 07-JUL-2016
     Route: 042
     Dates: end: 20180822
  4. TRASTUZUMAB [Suspect]
     Active Substance: TRASTUZUMAB
     Dosage: 220 MILLIGRAM, Q3W, 28-SEP-2018
     Route: 042
     Dates: end: 20190315
  5. TRASTUZUMAB [Suspect]
     Active Substance: TRASTUZUMAB
     Dosage: 400 MILLIGRAM, Q3WK (MAINTAINENCE DOSE), 17-JUN-2016
     Route: 042
  6. TRASTUZUMAB [Suspect]
     Active Substance: TRASTUZUMAB
     Dosage: 220 MILLIGRAM, Q3W, 28-SEP-2018
     Route: 042
  7. TRASTUZUMAB [Suspect]
     Active Substance: TRASTUZUMAB
     Dosage: 350 MILLIGRAM, Q3W, 07-JUL-2016
     Route: 042
     Dates: end: 20160822
  8. TRASTUZUMAB [Suspect]
     Active Substance: TRASTUZUMAB
     Dosage: UNK
     Route: 065
  9. TAMOXIFEN [Suspect]
     Active Substance: TAMOXIFEN
     Indication: Breast cancer metastatic
     Dosage: 20 MILLIGRAM, QD, START 04-JUL-2018
     Route: 048
     Dates: end: 20180915
  10. TAMOXIFEN [Suspect]
     Active Substance: TAMOXIFEN
     Indication: HER2 positive breast cancer
     Dosage: UNK
     Route: 065
  11. LETROZOLE [Suspect]
     Active Substance: LETROZOLE
     Indication: HER2 positive breast cancer
     Dosage: 2.5 MILLIGRAM, QD, 13-APR-2016
     Route: 048
     Dates: end: 20180704
  12. LETROZOLE [Suspect]
     Active Substance: LETROZOLE
     Dosage: UNK
     Route: 065
  13. TAMOXIFEN CITRATE [Suspect]
     Active Substance: TAMOXIFEN CITRATE
     Indication: HER2 positive breast cancer
     Dosage: 20 MILLIGRAM, QD, 04-JUL-2018
     Route: 065
     Dates: end: 20180915
  14. TAMOXIFEN CITRATE [Suspect]
     Active Substance: TAMOXIFEN CITRATE
     Dosage: UNK
     Route: 065
  15. LETROZOLE [Suspect]
     Active Substance: LETROZOLE
     Indication: Breast cancer metastatic
     Dosage: 2.5 MILLIGRAM, QD, START 13-APR-2016, DISCONTINUED DUE TO DISEASE PROGRESSION/ANTICANCER TREATMENT
     Route: 048
     Dates: end: 20180704
  16. LETROZOLE [Suspect]
     Active Substance: LETROZOLE
     Indication: HER2 positive breast cancer
     Dosage: UNK
     Route: 065
  17. TAXOTERE [Suspect]
     Active Substance: DOCETAXEL
     Indication: Breast cancer metastatic
     Dosage: 65 MILLIGRAM, Q3W, 26-FEB-2016
     Route: 042
     Dates: end: 20160226
  18. TAXOTERE [Suspect]
     Active Substance: DOCETAXEL
     Indication: HER2 positive breast cancer
     Dosage: UNK
     Route: 065
  19. TAXOTERE [Suspect]
     Active Substance: DOCETAXEL
     Dosage: 65 MILLIGRAM, Q3W, 26-FEB-2018
     Route: 042
     Dates: end: 20180226
  20. PERTUZUMAB [Suspect]
     Active Substance: PERTUZUMAB
     Indication: HER2 positive breast cancer
     Dosage: 840 MILLIGRAM, Q3WK (LOADING DOSE)
     Route: 042
     Dates: start: 20160225, end: 20160225
  21. PERTUZUMAB [Suspect]
     Active Substance: PERTUZUMAB
     Indication: Breast cancer metastatic
     Dosage: 420 MILLIGRAM, Q3W (MAINTAINENCE DOSE)
     Route: 042
     Dates: start: 20160225
  22. PERTUZUMAB [Suspect]
     Active Substance: PERTUZUMAB
     Dosage: 420 MILLIGRAM, Q3W
     Route: 042
     Dates: start: 20160225, end: 20180703
  23. PERTUZUMAB [Suspect]
     Active Substance: PERTUZUMAB
     Dosage: 420 MILLIGRAM, Q3W
     Route: 042
     Dates: start: 20160225, end: 20180704
  24. PERTUZUMAB [Suspect]
     Active Substance: PERTUZUMAB
     Dosage: 420 MILLIGRAM, Q3W, 23-MAY-2017
     Route: 042
  25. PERTUZUMAB [Suspect]
     Active Substance: PERTUZUMAB
     Dosage: 840 MILLIGRAM, Q3W
     Route: 042
     Dates: start: 20160225
  26. ADO-TRASTUZUMAB EMTANSINE [Suspect]
     Active Substance: ADO-TRASTUZUMAB EMTANSINE
     Indication: Breast cancer metastatic
     Dosage: 220 MILLIGRAM, Q3W, START 28-SEP-2018
     Route: 042
     Dates: end: 20190315
  27. ADO-TRASTUZUMAB EMTANSINE [Suspect]
     Active Substance: ADO-TRASTUZUMAB EMTANSINE
     Indication: HER2 positive breast cancer
  28. NERATINIB [Suspect]
     Active Substance: NERATINIB
     Indication: HER2 positive breast cancer
     Dosage: 240 MILLIGRAM, QD, START 03-APR-2019
     Route: 048
  29. NERATINIB [Suspect]
     Active Substance: NERATINIB
     Dosage: 240 MILLIGRAM, QD, START 03-APR-2019
     Route: 048
  30. CINACALCET HYDROCHLORIDE [Suspect]
     Active Substance: CINACALCET HYDROCHLORIDE
     Indication: Hypercalcaemia of malignancy
     Dosage: 30 MILLIGRAM, QD, START 13-APR-2019
     Route: 048
     Dates: end: 201907
  31. XGEVA [Suspect]
     Active Substance: DENOSUMAB
     Indication: Product used for unknown indication
     Dosage: 120 MILLIGRAM (120 MILLIGRAM, EVERY 3-4 WEEKS), START 10-JAN-2018
     Route: 058
     Dates: end: 20190426
  32. DOCETAXEL [Suspect]
     Active Substance: DOCETAXEL
     Indication: Breast cancer metastatic
     Dosage: 65 MILLIGRAM, Q3W
     Route: 042
     Dates: start: 20160226, end: 20160226
  33. LOPERAMIDE [Concomitant]
     Active Substance: LOPERAMIDE
     Indication: Product used for unknown indication
     Dosage: 2 MILLIGRAM, PRN (PRN AS NEEDED.)
     Route: 048
     Dates: start: 20160225
  34. LOPERAMIDE [Concomitant]
     Active Substance: LOPERAMIDE
     Dosage: 4 MILLIGRAM, JUL-2016
     Route: 048
     Dates: end: 201703
  35. DEXAMETHASONE [Concomitant]
     Active Substance: DEXAMETHASONE
     Indication: Prophylaxis
     Dosage: 8 MILLIGRAM, BID
     Route: 048
     Dates: start: 20160225
  36. DEXAMETHASONE [Concomitant]
     Active Substance: DEXAMETHASONE
     Dosage: 16 MILLIGRAM, QD
     Route: 048
     Dates: start: 20160225
  37. DEXAMETHASONE [Concomitant]
     Active Substance: DEXAMETHASONE
     Dosage: 8 MILLIGRAM, EVERY 0.5 DAY
     Route: 048
     Dates: start: 20160225
  38. CANDESARTAN [Concomitant]
     Active Substance: CANDESARTAN
     Indication: Product used for unknown indication
     Dosage: 8 MILLIGRAM, QD
     Route: 048
  39. CHLORHEXIDINE GLUCONATE [Concomitant]
     Active Substance: CHLORHEXIDINE GLUCONATE
     Indication: Prophylaxis
     Dosage: 0.8 PERCENT, QD (MOUTH WASH)
     Route: 048
     Dates: start: 20160225
  40. CHLORHEXIDINE GLUCONATE [Concomitant]
     Active Substance: CHLORHEXIDINE GLUCONATE
     Dosage: 0.2 PERCENT (0.25 DAYMOUTH WASH)
     Route: 048
     Dates: start: 20160225
  41. RIVAROXABAN [Concomitant]
     Active Substance: RIVAROXABAN
     Indication: Pulmonary embolism
     Dosage: 1 DOSAGE FORM, QD, START 28-NOV-2018
     Route: 048
  42. RIVAROXABAN [Concomitant]
     Active Substance: RIVAROXABAN
     Dosage: UNK, QD, START 28-NOV-2018
     Route: 048
  43. SITAGLIPTIN [Concomitant]
     Active Substance: SITAGLIPTIN
     Indication: Product used for unknown indication
     Dosage: 100 MILLIGRAM, QD
     Route: 048
  44. TRAMADOL HYDROCHLORIDE [Concomitant]
     Active Substance: TRAMADOL HYDROCHLORIDE
     Indication: Product used for unknown indication
     Dosage: 50 MILLIGRAM, QID
     Route: 048
     Dates: start: 20160217
  45. TRAMADOL HYDROCHLORIDE [Concomitant]
     Active Substance: TRAMADOL HYDROCHLORIDE
     Dosage: 200 MILLIGRAM, QD
     Route: 048
     Dates: start: 20160217
  46. ATORVASTATIN [Concomitant]
     Active Substance: ATORVASTATIN
     Indication: Product used for unknown indication
     Dosage: 20 MILLIGRAM, QD
     Route: 048
  47. ZOPICLONE [Concomitant]
     Active Substance: ZOPICLONE
     Indication: Product used for unknown indication
     Dosage: 3.75 MILLIGRAM, QD
     Route: 048
     Dates: start: 20160217
  48. DOCUSATE SODIUM [Concomitant]
     Active Substance: DOCUSATE SODIUM
     Indication: Product used for unknown indication
     Dosage: 400 MILLIGRAM, QD (200 MILLIGRAM PER 0.5 DAY)
     Route: 048
  49. DOCUSATE SODIUM [Concomitant]
     Active Substance: DOCUSATE SODIUM
     Dosage: 400 MILLIGRAM
     Route: 048
  50. DOCUSATE SODIUM [Concomitant]
     Active Substance: DOCUSATE SODIUM
     Dosage: 200 MILLIGRAM, QD
     Route: 048
  51. METOCLOPRAMIDE [Concomitant]
     Active Substance: METOCLOPRAMIDE
     Indication: Product used for unknown indication
     Dosage: 30 MILLIGRAM, QD (10 MILLIGRAM PER 0.33 DAY)
     Route: 048
  52. POTASSIUM BICARBONATE\POTASSIUM CHLORIDE [Concomitant]
     Active Substance: POTASSIUM BICARBONATE\POTASSIUM CHLORIDE
     Indication: Product used for unknown indication
     Dosage: EFFERVESCENT 2 TABLETS
     Route: 048
     Dates: start: 20160322, end: 20160326
  53. POTASSIUM BICARBONATE\POTASSIUM CHLORIDE [Concomitant]
     Active Substance: POTASSIUM BICARBONATE\POTASSIUM CHLORIDE
     Dosage: 2 DOSAGE FORM, 18-JUN-2019
     Route: 048
     Dates: end: 20190625
  54. POTASSIUM BICARBONATE\POTASSIUM CHLORIDE [Concomitant]
     Active Substance: POTASSIUM BICARBONATE\POTASSIUM CHLORIDE
     Dosage: UNK UNK, QD
     Route: 048
     Dates: start: 20160322, end: 20160326
  55. POLYETHYLENE GLYCOLS [Concomitant]
     Active Substance: POLYETHYLENE GLYCOLS
     Indication: Product used for unknown indication
     Dosage: 2 DOSAGE FORM, QD, SACHET
     Route: 065
  56. POLYETHYLENE GLYCOLS [Concomitant]
     Active Substance: POLYETHYLENE GLYCOLS
     Dosage: UNK, BID (SACHET)
     Route: 065
  57. POLYETHYLENE GLYCOLS [Concomitant]
     Active Substance: POLYETHYLENE GLYCOLS
     Dosage: UNK, EVERY 0.5 DAYS (SACHET)
     Route: 065
  58. POLYETHYLENE GLYCOLS [Concomitant]
     Active Substance: POLYETHYLENE GLYCOLS
     Dosage: UNK, QD, 2 UNK, QD (SACHET)
     Route: 065
  59. METFORMIN [Concomitant]
     Active Substance: METFORMIN HYDROCHLORIDE
     Indication: Product used for unknown indication
     Dosage: 2000 MILLIGRAM, QD (1000 MILLIGRAM, BID)
     Route: 048
  60. METFORMIN [Concomitant]
     Active Substance: METFORMIN HYDROCHLORIDE
     Dosage: 1000 MILLIGRAM
     Route: 065
  61. ZOLEDRONIC ACID [Concomitant]
     Active Substance: ZOLEDRONIC ACID
     Indication: Prophylaxis
     Dosage: 3.3 MILLIGRAM, MONTHLY
     Route: 042
     Dates: start: 20160226, end: 20170323
  62. ZOLEDRONIC ACID [Concomitant]
     Active Substance: ZOLEDRONIC ACID
     Dosage: 3.5 MILLIGRAM, EVERY 3-4WEEKS FOR 9 CYCLES THEN 3 MONTS, 14-APR-2016
     Route: 042
     Dates: end: 20170112
  63. ZOLEDRONIC ACID [Concomitant]
     Active Substance: ZOLEDRONIC ACID
     Dosage: 3 MILLIGRAM, 28-JUN-2017
     Route: 042
     Dates: end: 20171220
  64. ZOLEDRONIC ACID [Concomitant]
     Active Substance: ZOLEDRONIC ACID
     Dosage: 3.5 MILLIGRAM, EVERY 3-4WEEKS FOR 9 CYCLES THEN 3 MONTS, 08-APR-2019
     Route: 042
     Dates: end: 20190408
  65. ZOLEDRONIC ACID [Concomitant]
     Active Substance: ZOLEDRONIC ACID
     Dosage: 3 MILLIGRAM, 10-MAY-2019
     Route: 042
     Dates: end: 20190529
  66. ZOLEDRONIC ACID [Concomitant]
     Active Substance: ZOLEDRONIC ACID
     Dosage: UNK
     Route: 065
  67. ZOLEDRONIC ACID [Concomitant]
     Active Substance: ZOLEDRONIC ACID
     Dosage: 3.3 MILLIGRAM, 09-FEB-2017
     Route: 042
     Dates: end: 20170323
  68. TINZAPARIN [Concomitant]
     Active Substance: TINZAPARIN
     Indication: Product used for unknown indication
     Dosage: 1 DOSAGE FORM, QD (11000 UNIT), START 15-SEP-2018
     Route: 058
     Dates: end: 20181128
  69. DOMPERIDONE [Concomitant]
     Active Substance: DOMPERIDONE
     Indication: Product used for unknown indication
     Dosage: 30 MILLIGRAM, QD (10 MILLIGRAM PER 0.33 DAY)
     Route: 048
     Dates: start: 20160225
  70. DOMPERIDONE [Concomitant]
     Active Substance: DOMPERIDONE
     Dosage: 10 MILLIGRAM, EVERY 0.33 DAYS
     Route: 048
     Dates: start: 20160225
  71. MESALAMINE [Concomitant]
     Active Substance: MESALAMINE
     Indication: Gastrointestinal motility disorder
     Dosage: 2400 MILLIGRAM, QD (800 MILLIGRAM PER 0.33 DAY), START 23-MAY-2017
     Route: 048
     Dates: end: 2017
  72. MESALAMINE [Concomitant]
     Active Substance: MESALAMINE
     Dosage: 800 MILLIGRAM, QD, START 23-MAY-2017
     Route: 048
  73. MESALAMINE [Concomitant]
     Active Substance: MESALAMINE
     Dosage: 800 MILLIGRAM (START 23-MAY-2017)
     Route: 048
     Dates: end: 2017
  74. CHLOROCRESOL [Concomitant]
     Active Substance: CHLOROCRESOL
     Indication: Rash pruritic
     Dosage: UNK
     Route: 065
  75. BUDESONIDE [Concomitant]
     Active Substance: BUDESONIDE
     Indication: Product used for unknown indication
     Dosage: 9 MILLIGRAM, QD, START 03-APR-2019
     Route: 048
     Dates: end: 20190523
  76. BUDESONIDE [Concomitant]
     Active Substance: BUDESONIDE
     Dosage: 9 MILLIGRAM, QD, START 03-APR-2019
     Route: 048
  77. TRIMETHOPRIM [Concomitant]
     Active Substance: TRIMETHOPRIM
     Indication: Urinary tract infection
     Dosage: UNK, START 12-APR-2019
     Route: 048
     Dates: end: 20190414
  78. SODIUM PHOSPHATE, MONOBASIC, ANHYDROUS [Concomitant]
     Active Substance: SODIUM PHOSPHATE, MONOBASIC, ANHYDROUS
     Indication: Blood phosphorus decreased
     Dosage: UNK, START 23-APR-2019
     Route: 048
     Dates: end: 20190425
  79. SODIUM PHOSPHATE, MONOBASIC, ANHYDROUS [Concomitant]
     Active Substance: SODIUM PHOSPHATE, MONOBASIC, ANHYDROUS
     Indication: Hypophosphataemia
     Dosage: 2 DOSAGE FORM (2 TABLETS PER 0.33 DAY), START 11-JUN-2019
     Route: 048
     Dates: end: 20190614
  80. SODIUM PHOSPHATE, MONOBASIC, ANHYDROUS [Concomitant]
     Active Substance: SODIUM PHOSPHATE, MONOBASIC, ANHYDROUS
     Dosage: 2 DOSAGE FORM, START 18-JUN-2019
     Route: 048
     Dates: end: 20190625
  81. MAGNESIUM GLYCEROPHOSPHATE [Concomitant]
     Active Substance: MAGNESIUM GLYCEROPHOSPHATE
     Indication: Hypomagnesaemia
     Dosage: 12 MILLIMOLE, QD (4 MILLIMOLE PER 0.33 DAY), START 26-MAY-2016
     Route: 048
     Dates: end: 20160530
  82. POTASSIUM CHLORIDE [Concomitant]
     Active Substance: POTASSIUM CHLORIDE
     Indication: Blood potassium decreased
     Dosage: 1 DOSAGE FORM, PRN, EVERY 3-4WEEKS FOR 9 CYCLES THEN 3 MONTS, START 11-JUN-2019
     Route: 042
     Dates: end: 20190620
  83. POTASSIUM CHLORIDE [Concomitant]
     Active Substance: POTASSIUM CHLORIDE
     Dosage: UNK
     Route: 065
  84. POTASSIUM CHLORIDE [Concomitant]
     Active Substance: POTASSIUM CHLORIDE
     Dosage: UNK MMOL/L, AS NECESSARY, EVERY 3-4WEEKS FOR 9 CYCLES THEN 3 MONTHS, START 11-JUN-2019
     Route: 042
     Dates: end: 20190620
  85. AMLODIPINE [Concomitant]
     Active Substance: AMLODIPINE BESYLATE
     Indication: Hypertension
     Dosage: 5 MILLIGRAM, QD
     Route: 048
  86. AMLODIPINE [Concomitant]
     Active Substance: AMLODIPINE BESYLATE
     Dosage: 5 MILLIGRAM, QD, START 15-SEP-2018
     Route: 048
     Dates: end: 20190529
  87. AMLODIPINE [Concomitant]
     Active Substance: AMLODIPINE BESYLATE
     Dosage: 5 MILLIGRAM, QD, START 15-SEP-2018
     Route: 048
     Dates: start: 20180915, end: 20190529
  88. LINAGLIPTIN [Concomitant]
     Active Substance: LINAGLIPTIN
     Indication: Product used for unknown indication
     Dosage: 5 MILLIGRAM, QD, START SEP-2018
     Route: 048
     Dates: end: 201905
  89. POTASSIUM BICARBONATE [Concomitant]
     Active Substance: POTASSIUM BICARBONATE
     Indication: Hypophosphataemia
     Dosage: 2 DOSAGE FORM (2 TABLETS, PER 0.33 DAY), START 11-JUN-2019
     Route: 048
     Dates: end: 20190614
  90. GLICLAZIDE [Concomitant]
     Active Substance: GLICLAZIDE
     Indication: Product used for unknown indication
     Dosage: 80 MILLIGRAM, QD, START SEP-2018
     Route: 048
     Dates: end: 20190424
  91. GLICLAZIDE [Concomitant]
     Active Substance: GLICLAZIDE
     Dosage: 80 MILLIGRAM, QD, START 25-APR-2019
     Route: 048
     Dates: end: 201905
  92. GLICLAZIDE [Concomitant]
     Active Substance: GLICLAZIDE
     Dosage: 40 MILLIGRAM, QD, START 20-JUN-2019
     Route: 048
     Dates: end: 20190705
  93. BENZYDAMINE HYDROCHLORIDE [Concomitant]
     Active Substance: BENZYDAMINE HYDROCHLORIDE
     Indication: Glossodynia
     Dosage: 5 MILLILITER, START 06-JUN-2019
     Route: 061
     Dates: end: 20190705
  94. BENZYDAMINE HYDROCHLORIDE [Concomitant]
     Active Substance: BENZYDAMINE HYDROCHLORIDE
     Dosage: 5 MILLILITER, START 06-JUN-2019
     Route: 061
     Dates: start: 20190606, end: 20190705
  95. ACTRAPID [Concomitant]
     Active Substance: INSULIN HUMAN
     Dosage: UNK, START 20-JUN-2019
     Route: 058
     Dates: end: 20190705
  96. CALCIUM\CHOLECALCIFEROL [Concomitant]
     Active Substance: CALCIUM\CHOLECALCIFEROL
     Indication: Product used for unknown indication
     Dosage: 2 DOSAGE FORM, QD
     Route: 048
     Dates: start: 20160323
  97. COCODAMOL [Concomitant]
     Active Substance: ACETAMINOPHEN\CODEINE PHOSPHATE
     Indication: Back pain
     Dosage: 1 DOSAGE FORM, PRN
     Route: 048
  98. COCODAMOL [Concomitant]
     Active Substance: ACETAMINOPHEN\CODEINE PHOSPHATE
     Dosage: 2 DOSAGE FORM, PRN (2 TABLET, PRN), START 07-JUL-2016
     Route: 048
  99. COCODAMOL [Concomitant]
     Active Substance: ACETAMINOPHEN\CODEINE PHOSPHATE
     Dosage: 2 DOSAGE FORM, PRN (2 TABLET, PRN), START 07-JUL-2016
     Route: 048
     Dates: start: 20160707
  100. CINACALCET [Concomitant]
     Active Substance: CINACALCET
     Indication: Hypercalcaemia of malignancy
     Dosage: 30 MILLIGRAM, QD, START 13-APR-2019
     Route: 048
     Dates: end: 201907
  101. CINACALCET [Concomitant]
     Active Substance: CINACALCET
     Dosage: 30 MILLIGRAM, QD, START 13-APR-2019
     Route: 048
  102. CINACALCET [Concomitant]
     Active Substance: CINACALCET
     Dosage: 30 MILLIGRAM, QD, START 13-APR-2019
     Route: 048
     Dates: start: 20190413, end: 201907
  103. DENOSUMAB [Concomitant]
     Active Substance: DENOSUMAB
     Indication: Product used for unknown indication
     Dosage: 120 MILLIGRAM (120 MG EVERY 3-4 WEEKS), START 10-JAN-2018
     Route: 058
     Dates: end: 20190426
  104. DENOSUMAB [Concomitant]
     Active Substance: DENOSUMAB
     Dosage: 120 MILLIGRAM (120 MG EVERY 3-4 WEEKS), START 10-JAN-2018
     Route: 058
     Dates: start: 20180110
  105. DENOSUMAB [Concomitant]
     Active Substance: DENOSUMAB
     Dosage: 120 MILLIGRAM (120 MG EVERY 3-4 WEEKS), START 10-JAN-2018
     Route: 058
     Dates: start: 20180110, end: 20190426
  106. INSULIN HUMAN [Concomitant]
     Active Substance: INSULIN HUMAN
     Indication: Product used for unknown indication
     Dosage: UNK, START 20-JUN-2019
     Route: 058
     Dates: end: 20190705
  107. INSULIN HUMAN [Concomitant]
     Active Substance: INSULIN HUMAN
     Dosage: UNK
     Route: 058
     Dates: start: 20190620, end: 20190705
  108. SODIUM BICARBONATE [Concomitant]
     Active Substance: SODIUM BICARBONATE
     Indication: Hypophosphataemia
     Dosage: UNK (2 TABLETS FOR 0.33/DAY), START 11-JUN-2019
     Route: 048
     Dates: end: 20190614
  109. SODIUM CHLORIDE [Concomitant]
     Active Substance: SODIUM CHLORIDE
     Indication: Product used for unknown indication
     Dosage: 0.9 PERCENT, START 08-MAY-2019
     Route: 042
     Dates: end: 20190510
  110. SODIUM CHLORIDE [Concomitant]
     Active Substance: SODIUM CHLORIDE
     Dosage: UNK
     Route: 065
  111. SODIUM PHOSPHATE, MONOBASIC [Concomitant]
     Active Substance: SODIUM PHOSPHATE, MONOBASIC
     Indication: Hypophosphataemia
     Dosage: UNK (2 TABLETS), START 11-JUN-2019
     Route: 048
     Dates: end: 20190614
  112. Potassium bicarbonate;Sodium bicarbonate;Sodium phosphate monobasic (a [Concomitant]
     Indication: Hypophosphataemia
     Dosage: 2 TABLETS (START DATE: 11-JUN-2019)
     Route: 048
     Dates: end: 20190614
  113. CHOLECALCIFEROL [Concomitant]
     Active Substance: CHOLECALCIFEROL
     Indication: Product used for unknown indication
     Dosage: 2 DOSAGE FORM, QD
     Route: 048
     Dates: start: 20160303

REACTIONS (15)
  - Disease progression [Fatal]
  - Pulmonary embolism [Fatal]
  - Off label use [Fatal]
  - Condition aggravated [Unknown]
  - Decreased appetite [Not Recovered/Not Resolved]
  - Hypomagnesaemia [Recovered/Resolved]
  - Rectal haemorrhage [Not Recovered/Not Resolved]
  - Cholelithiasis [Not Recovered/Not Resolved]
  - Acute kidney injury [Recovered/Resolved]
  - Weight decreased [Recovered/Resolved]
  - Back pain [Not Recovered/Not Resolved]
  - Rash pruritic [Recovered/Resolved]
  - Diarrhoea [Recovered/Resolved]
  - Vomiting [Recovered/Resolved]
  - Urinary tract infection [Recovered/Resolved]

NARRATIVE: CASE EVENT DATE: 20160323
